FAERS Safety Report 9485946 (Version 1)
Quarter: 2013Q3

REPORT INFORMATION
  Report Type: Spontaneous
  Country: US (occurrence: None)
  Receive Date: 20130826
  Receipt Date: 20130826
  Transmission Date: 20140515
  Serious: Yes (Other)
  Sender: FDA-Public Use
  Company Number: 2013P1018526

PATIENT
  Sex: 0

DRUGS (1)
  1. DEXEDRINE [Suspect]

REACTIONS (2)
  - Nasal septum perforation [None]
  - Nasal septum ulceration [None]
